FAERS Safety Report 10594124 (Version 1)
Quarter: 2014Q4

REPORT INFORMATION
  Report Type: Spontaneous
  Country: US (occurrence: US)
  Receive Date: 20141119
  Receipt Date: 20141119
  Transmission Date: 20150529
  Serious: Yes (Other)
  Sender: FDA-Public Use
  Company Number: US-SA-2014SA156059

PATIENT
  Sex: Male

DRUGS (4)
  1. LANTUS SOLOSTAR [Suspect]
     Active Substance: INSULIN GLARGINE
     Dosage: 25 UNITS IN MORNING AND 20 UNITS AT NIGHT
     Route: 065
  2. SOLOSTAR [Concomitant]
     Active Substance: DEVICE
  3. HUMALOG [Concomitant]
     Active Substance: INSULIN LISPRO
  4. ANTIBIOTICS [Concomitant]
     Active Substance: UNSPECIFIED INGREDIENT

REACTIONS (7)
  - Scab [Unknown]
  - Rash erythematous [Unknown]
  - Rectal cancer [Unknown]
  - Wheelchair user [Unknown]
  - Drug administration error [Unknown]
  - Pruritus generalised [Unknown]
  - Urticaria [Unknown]
